FAERS Safety Report 10674520 (Version 1)
Quarter: 2014Q4

REPORT INFORMATION
  Report Type: Spontaneous
  Country: US (occurrence: None)
  Receive Date: 20141223
  Receipt Date: 20141223
  Transmission Date: 20150529
  Serious: Yes (Hospitalization)
  Sender: FDA-Public Use
  Company Number: None

PATIENT
  Age: 60 Year
  Sex: Female
  Weight: 141.7 kg

DRUGS (2)
  1. CARBOPLATIN. [Suspect]
     Active Substance: CARBOPLATIN
     Dates: end: 20141208
  2. TAXOL [Suspect]
     Active Substance: PACLITAXEL
     Dates: end: 20141208

REACTIONS (8)
  - Infection [None]
  - Swelling [None]
  - Blister [None]
  - Neutrophil count decreased [None]
  - Pain [None]
  - Soft tissue necrosis [None]
  - Catheter site related reaction [None]
  - Chemical injury [None]

NARRATIVE: CASE EVENT DATE: 20141215
